FAERS Safety Report 8125204-6 (Version None)
Quarter: 2012Q1

REPORT INFORMATION
  Report Type: 
  Country: None (occurrence: None)
  Receive Date: 20120209
  Receipt Date: 20120201
  Transmission Date: 20120608
  Serious: Yes (Hospitalization)
  Sender: FDA-Public Use
  Company Number: US-BAYER-201033456NA

PATIENT
  Age: 22 Year
  Sex: Female
  Weight: 104.31 kg

DRUGS (3)
  1. ZYRTEC [Concomitant]
  2. FLONASE [Concomitant]
  3. YASMIN [Suspect]
     Indication: AMENORRHOEA
     Dosage: UNK
     Dates: start: 20031201

REACTIONS (5)
  - DEEP VEIN THROMBOSIS [None]
  - ANXIETY [None]
  - DEPRESSION [None]
  - PULMONARY EMBOLISM [None]
  - EMOTIONAL DISTRESS [None]
